FAERS Safety Report 14606852 (Version 1)
Quarter: 2018Q1

REPORT INFORMATION
  Report Type: Spontaneous
  Country: US (occurrence: US)
  Receive Date: 20180307
  Receipt Date: 20180307
  Transmission Date: 20180509
  Serious: No
  Sender: FDA-Public Use
  Company Number: US-STRIDES ARCOLAB LIMITED-2017SP015052

PATIENT

DRUGS (4)
  1. METRONIDAZOLE. [Suspect]
     Active Substance: METRONIDAZOLE
     Indication: ANTIBIOTIC PROPHYLAXIS
     Dosage: 500 MG, EVERY 12 HRS
     Route: 048
  2. ERYTHROMYCIN BASE [Concomitant]
     Active Substance: ERYTHROMYCIN
     Indication: ANTIBIOTIC PROPHYLAXIS
     Dosage: 1 G, (AT 1, 2, AND 11 PM)
     Route: 048
  3. NEOMYCIN. [Concomitant]
     Active Substance: NEOMYCIN
     Indication: ANTIBIOTIC PROPHYLAXIS
     Dosage: 1 G, UNKNOWN
     Route: 048
  4. LEVOFLOXACIN. [Concomitant]
     Active Substance: LEVOFLOXACIN
     Indication: ANTIBIOTIC PROPHYLAXIS
     Dosage: 500 MG, DAILY
     Route: 048

REACTIONS (1)
  - Off label use [Unknown]
